FAERS Safety Report 23921151 (Version 1)
Quarter: 2024Q2

REPORT INFORMATION
  Report Type: Spontaneous
  Country: SE (occurrence: SE)
  Receive Date: 20240530
  Receipt Date: 20240530
  Transmission Date: 20240715
  Serious: Yes (Life-Threatening, Hospitalization)
  Sender: FDA-Public Use
  Company Number: None

PATIENT
  Age: 34 Year
  Sex: Female

DRUGS (4)
  1. ROPIVACAINE [Suspect]
     Active Substance: ROPIVACAINE
     Indication: Local anaesthesia
     Dosage: 10 ML ON EACH SIDE?FORM OF ADMIN: SOLUTION FOR INJECTION
     Route: 067
     Dates: start: 20240517, end: 20240517
  2. ROPIVACAINE [Suspect]
     Active Substance: ROPIVACAINE
     Indication: Retained products of conception
  3. ROPIVACAINE [Suspect]
     Active Substance: ROPIVACAINE
     Indication: Gynaecological examination
  4. ACETAMINOPHEN [Concomitant]
     Active Substance: ACETAMINOPHEN
     Indication: Product used for unknown indication
     Dosage: FOA-FILM COATED TABLET
     Route: 048
     Dates: start: 20240517, end: 20240517

REACTIONS (3)
  - Seizure [Recovered/Resolved]
  - Loss of consciousness [Recovered/Resolved]
  - Snoring [Recovered/Resolved]

NARRATIVE: CASE EVENT DATE: 20240517
